FAERS Safety Report 6721246-3 (Version None)
Quarter: 2010Q2

REPORT INFORMATION
  Report Type: 
  Country: None (occurrence: None)
  Receive Date: 20100512
  Receipt Date: 20100429
  Transmission Date: 20101027
  Serious: Yes (Hospitalization)
  Sender: FDA-Public Use
  Company Number: GB-BAYER-201017899GPV

PATIENT
  Age: 35 Year
  Sex: Male

DRUGS (4)
  1. ALEMTUZUMAB [Suspect]
     Indication: MULTIPLE SCLEROSIS
     Dosage: MONTH 0
     Route: 042
     Dates: start: 20090810, end: 20090814
  2. METHYLPREDNISOLONE 4MG TAB [Concomitant]
     Dates: start: 20090810, end: 20090812
  3. PARACETAMOL [Concomitant]
     Dates: start: 20100102, end: 20100107
  4. AMOXICILLIN [Concomitant]
     Dates: start: 20100209, end: 20100213

REACTIONS (5)
  - CD4 LYMPHOCYTES DECREASED [None]
  - LYMPHOCYTE COUNT DECREASED [None]
  - RETINAL PIGMENT EPITHELIOPATHY [None]
  - URINARY TRACT INFECTION [None]
  - WHITE BLOOD CELL COUNT DECREASED [None]
